FAERS Safety Report 23820661 (Version 2)
Quarter: 2024Q2

REPORT INFORMATION
  Report Type: Spontaneous
  Country: EG (occurrence: EG)
  Receive Date: 20240506
  Receipt Date: 20240510
  Transmission Date: 20240716
  Serious: Yes (Death, Hospitalization)
  Sender: FDA-Public Use
  Company Number: EG-PFIZER INC-PV202400057831

PATIENT
  Age: 8 Day
  Sex: Male
  Weight: 1.6 kg

DRUGS (4)
  1. MEROPENEM [Suspect]
     Active Substance: MEROPENEM
     Dosage: 6 ML, 3X/DAY (EVERY 8 HOURS)
     Route: 042
  2. VANCOMYCIN [Suspect]
     Active Substance: VANCOMYCIN
     Dosage: 3 ML/ 12 HRS
     Route: 042
  3. MIDAZOLAM HYDROCHLORIDE [Concomitant]
     Active Substance: MIDAZOLAM HYDROCHLORIDE
  4. DIFLUCAN [Concomitant]
     Active Substance: FLUCONAZOLE

REACTIONS (4)
  - Thrombocytopenia neonatal [Fatal]
  - Haemoglobin decreased [Unknown]
  - Generalised oedema [Unknown]
  - Off label use [Unknown]
